FAERS Safety Report 7595785-X (Version None)
Quarter: 2011Q3

REPORT INFORMATION
  Report Type: 
  Country: None (occurrence: None)
  Receive Date: 20110707
  Receipt Date: 20110630
  Transmission Date: 20111222
  Serious: Yes (Other)
  Sender: FDA-Public Use
  Company Number: JP-PFIZER INC-2011144388

PATIENT
  Age: 19 Year
  Sex: Male

DRUGS (1)
  1. LINCOCIN [Suspect]
     Dosage: UNK
     Route: 041
     Dates: start: 20110617, end: 20110622

REACTIONS (1)
  - LIVER DISORDER [None]
